FAERS Safety Report 21647689 (Version 2)
Quarter: 2022Q4

REPORT INFORMATION
  Report Type: Other
  Country: PT (occurrence: None)
  Receive Date: 20221128
  Receipt Date: 20221208
  Transmission Date: 20230112
  Serious: Yes (Other)
  Sender: FDA-Public Use
  Company Number: PT-ROCHE-3225598

PATIENT
  Sex: Female

DRUGS (6)
  1. ESBRIET [Suspect]
     Active Substance: PIRFENIDONE
     Indication: Idiopathic pulmonary fibrosis
     Dosage: 3 PILLS PER DAY
     Route: 048
     Dates: start: 20220704
  2. ESBRIET [Suspect]
     Active Substance: PIRFENIDONE
     Dosage: 3 PILLS PER DAY
     Route: 048
  3. PANTOPRAZOLE [Concomitant]
     Active Substance: PANTOPRAZOLE
  4. BISOPROLOL [Concomitant]
     Active Substance: BISOPROLOL
  5. FLABIEN [Concomitant]
  6. LERCANIDIPINE [Concomitant]
     Active Substance: LERCANIDIPINE

REACTIONS (3)
  - Fatigue [Not Recovered/Not Resolved]
  - Blood sodium increased [Not Recovered/Not Resolved]
  - Cough [Not Recovered/Not Resolved]
